FAERS Safety Report 9265061 (Version 1)
Quarter: 2013Q2

REPORT INFORMATION
  Report Type: Spontaneous
  Country: DE (occurrence: None)
  Receive Date: 20130429
  Receipt Date: 20130429
  Transmission Date: 20140414
  Serious: Yes (Death, Hospitalization)
  Sender: FDA-Public Use
  Company Number: DE-LHC-2013022

PATIENT
  Age: 68 Year
  Sex: Male

DRUGS (2)
  1. CARBON DIOXIDE [Suspect]
     Indication: PNEUMOPERITONEUM
     Dosage: PREOCEDURE LASTED FOR 85 MIN
  2. HALOTANE [Concomitant]

REACTIONS (9)
  - Intestinal ischaemia [None]
  - Renal failure [None]
  - Abdominal sepsis [None]
  - Intestinal anastomosis complication [None]
  - Post procedural complication [None]
  - Surgical procedure repeated [None]
  - General physical health deterioration [None]
  - Ileal gangrene [None]
  - Colon gangrene [None]
